FAERS Safety Report 18557945 (Version 2)
Quarter: 2022Q1

REPORT INFORMATION
  Report Type: Spontaneous
  Country: DE (occurrence: DE)
  Receive Date: 20201130
  Receipt Date: 20220103
  Transmission Date: 20220423
  Serious: Yes (Hospitalization)
  Sender: FDA-Public Use
  Company Number: DE-SA-2020SA317342

PATIENT
  Age: 75 Year
  Sex: Male
  Weight: 76 kg

DRUGS (8)
  1. OXALIPLATIN [Suspect]
     Active Substance: OXALIPLATIN
     Indication: Colorectal cancer metastatic
     Dosage: 158 MILLIGRAM, CYCLICAL(158 MILLIGRAM (QCY))
     Route: 042
     Dates: start: 20190605, end: 20190605
  2. OXALIPLATIN [Suspect]
     Active Substance: OXALIPLATIN
     Dosage: 158 MILLIGRAM, CYCLICAL(158 MILLIGRAM (QCY))
     Route: 042
     Dates: start: 20190821, end: 20190821
  3. AFLIBERCEPT [Suspect]
     Active Substance: AFLIBERCEPT
     Indication: Colorectal cancer metastatic
     Dosage: 288 MILLIGRAM, CYCLICAL(288 MILLIGRAM  (QCY))
     Route: 042
     Dates: start: 20190605, end: 20190605
  4. AFLIBERCEPT [Suspect]
     Active Substance: AFLIBERCEPT
     Dosage: 288 MILLIGRAM, CYCLICAL(288 MILLIGRAM (QCY))
     Route: 042
     Dates: start: 20190807, end: 20190807
  5. FLUOROURACIL [Suspect]
     Active Substance: FLUOROURACIL
     Indication: Colorectal cancer metastatic
     Dosage: 5208 MILLIGRAM ( QCY)
     Route: 042
     Dates: start: 20190605, end: 20190605
  6. FLUOROURACIL [Suspect]
     Active Substance: FLUOROURACIL
     Dosage: 5208 MILLIGRAM (QCY)
     Route: 042
     Dates: start: 20190821, end: 20190821
  7. LEUCOVORIN [Suspect]
     Active Substance: LEUCOVORIN
     Indication: Colorectal cancer metastatic
     Dosage: 651 MILLIGRAM, CYCLICAL(651 MILLIGRAM (QCY))
     Route: 042
     Dates: start: 20190605, end: 20190605
  8. LEUCOVORIN [Suspect]
     Active Substance: LEUCOVORIN
     Dosage: 651 MILLIGRAM, CYCLICAL(651 MG, QCY)
     Route: 042
     Dates: start: 20190821, end: 20190821

REACTIONS (1)
  - Post procedural bile leak [Recovered/Resolved]

NARRATIVE: CASE EVENT DATE: 20191017
